FAERS Safety Report 5703695-5 (Version None)
Quarter: 2008Q2

REPORT INFORMATION
  Report Type: 
  Country: None (occurrence: None)
  Receive Date: 20080413
  Receipt Date: 20080408
  Transmission Date: 20081010
  Serious: Yes (Other)
  Sender: FDA-Public Use
  Company Number: PHNU2008DE01526

PATIENT
  Sex: Male

DRUGS (1)
  1. EMSELEX EXTENDED RELEASE [Suspect]

REACTIONS (1)
  - ULCER [None]
